FAERS Safety Report 14034664 (Version 1)
Quarter: 2017Q4

REPORT INFORMATION
  Report Type: Spontaneous
  Country: FR (occurrence: FR)
  Receive Date: 20171003
  Receipt Date: 20171003
  Transmission Date: 20180321
  Serious: Yes (Other)
  Sender: FDA-Public Use
  Company Number: FR-MERCK KGAA-2028636

PATIENT
  Age: 30 Year
  Sex: Female

DRUGS (3)
  1. NOVOTHYROX [Suspect]
     Active Substance: LEVOTHYROXINE SODIUM
     Route: 048
  2. NOVOTHYROX [Suspect]
     Active Substance: LEVOTHYROXINE SODIUM
     Indication: AUTOIMMUNE THYROIDITIS
     Route: 048
     Dates: start: 201705
  3. NOVOTHYROX [Suspect]
     Active Substance: LEVOTHYROXINE SODIUM
     Route: 048
     Dates: end: 201708

REACTIONS (4)
  - Insomnia [Recovered/Resolved]
  - Palpitations [Recovered/Resolved]
  - Myalgia [Recovered/Resolved]
  - Blood thyroid stimulating hormone increased [Recovered/Resolved with Sequelae]

NARRATIVE: CASE EVENT DATE: 201706
